FAERS Safety Report 19589792 (Version 1)
Quarter: 2021Q3

REPORT INFORMATION
  Report Type: Spontaneous
  Country: FR (occurrence: FR)
  Receive Date: 20210721
  Receipt Date: 20210721
  Transmission Date: 20211014
  Serious: Yes (Other)
  Sender: FDA-Public Use
  Company Number: FR-DENTSPLY-2021SCDP000199

PATIENT
  Age: 40 Year
  Sex: Female

DRUGS (1)
  1. LIDOCAINE HYDROCHLORIDE AND EPINEPHRINE BITARTRATE [Suspect]
     Active Substance: EPINEPHRINE BITARTRATE\LIDOCAINE HYDROCHLORIDE
     Indication: PAROTIDECTOMY
     Dosage: UNK SOLUTION FOR INJECTION (5?7 ML ON THE HEMI?FACE OPERATED IN THE FRAME OF PAROTIDECTOMY)
     Route: 051
     Dates: start: 20210316, end: 20210316

REACTIONS (1)
  - Facial paralysis [None]
